FAERS Safety Report 19403373 (Version 1)
Quarter: 2021Q2

REPORT INFORMATION
  Report Type: Spontaneous
  Country: US (occurrence: US)
  Receive Date: 20210611
  Receipt Date: 20210611
  Transmission Date: 20210717
  Serious: Yes (Death, Other)
  Sender: FDA-Public Use
  Company Number: US-PFIZER INC-2021640234

PATIENT
  Age: 68 Year
  Sex: Male

DRUGS (4)
  1. ESTRAMUSTINE SODIUM PHOSPHATE [Suspect]
     Active Substance: ESTRAMUSTINE PHOSPHATE SODIUM
     Indication: PROSTATE CANCER
     Dosage: UNK, CYCLIC
     Dates: start: 19970213, end: 19970711
  2. KETOCONAZOLE. [Concomitant]
     Active Substance: KETOCONAZOLE
     Indication: PROSTATE CANCER
     Dosage: 200 MG, 3X/DAY
     Route: 048
  3. DOXORUBICIN HCL [Concomitant]
     Active Substance: DOXORUBICIN HYDROCHLORIDE
     Indication: PROSTATE CANCER
     Dosage: 20 MG/M2, WEEKLY (AS TOLERATED)
     Route: 042
  4. VINBLASTINE [Concomitant]
     Active Substance: VINBLASTINE
     Indication: PROSTATE CANCER
     Dosage: UNK, CYCLIC

REACTIONS (1)
  - Hypocalcaemia [Recovering/Resolving]
